FAERS Safety Report 5669945-9 (Version None)
Quarter: 2008Q1

REPORT INFORMATION
  Report Type: 
  Country: None (occurrence: None)
  Receive Date: 20080312
  Receipt Date: 20080303
  Transmission Date: 20080703
  Serious: Yes (Death, Hospitalization, Other)
  Sender: FDA-Public Use
  Company Number: 18605

PATIENT
  Age: 77 Year
  Sex: Female

DRUGS (5)
  1. VINCRISTINE [Suspect]
     Indication: NON-HODGKIN'S LYMPHOMA
  2. CYCLOPHOSPHAMIDE [Suspect]
     Indication: NON-HODGKIN'S LYMPHOMA
  3. ADRIAMYCIN /00220901/ [Suspect]
     Indication: NON-HODGKIN'S LYMPHOMA
  4. PREDNISONE TAB [Suspect]
     Indication: NON-HODGKIN'S LYMPHOMA
  5. MABTHERA. MFR: NOT SPECIFIED [Suspect]
     Indication: NON-HODGKIN'S LYMPHOMA
     Dates: end: 20050608

REACTIONS (6)
  - GENITAL HERPES [None]
  - HEPATIC ENCEPHALOPATHY [None]
  - HEPATITIS B [None]
  - HEPATITIS FULMINANT [None]
  - PROTHROMBIN TIME SHORTENED [None]
  - URINARY TRACT INFECTION [None]
